FAERS Safety Report 8180990-4 (Version None)
Quarter: 2012Q1

REPORT INFORMATION
  Report Type: 
  Country: None (occurrence: None)
  Receive Date: 20120302
  Receipt Date: 20120210
  Transmission Date: 20120608
  Serious: Yes (Other)
  Sender: FDA-Public Use
  Company Number: US-GLAXOSMITHKLINE-A0965538A

PATIENT
  Age: 79 Year
  Sex: Female
  Weight: 63 kg

DRUGS (10)
  1. DOCUSATE [Concomitant]
  2. XALATAN [Concomitant]
  3. IMODIUM [Concomitant]
  4. ARIMIDEX [Concomitant]
  5. ARZERRA [Suspect]
     Indication: CHRONIC LYMPHOCYTIC LEUKAEMIA
     Route: 042
     Dates: start: 20120210, end: 20120210
  6. COMBIGAN [Concomitant]
  7. GLUCOSAMINE [Concomitant]
  8. DIPHENHYDRAMINE HCL [Concomitant]
  9. CALCIUM [Concomitant]
  10. ACETAMINOPHEN [Concomitant]

REACTIONS (2)
  - URTICARIA [None]
  - PRURITUS [None]
